FAERS Safety Report 7678704-7 (Version None)
Quarter: 2011Q3

REPORT INFORMATION
  Report Type: 
  Country: None (occurrence: None)
  Receive Date: 20110811
  Receipt Date: 20110809
  Transmission Date: 20111222
  Serious: No
  Sender: FDA-Public Use
  Company Number: US-BAYER-2011-071550

PATIENT
  Sex: Female

DRUGS (2)
  1. BEYAZ [Suspect]
  2. DROSPIRENONE AND ETHINYL ESTRADIOL [Suspect]

REACTIONS (4)
  - WEIGHT INCREASED [None]
  - MALAISE [None]
  - SKIN DISORDER [None]
  - IRRITABILITY [None]
